FAERS Safety Report 6370736-4 (Version None)
Quarter: 2009Q3

REPORT INFORMATION
  Report Type: 
  Country: None (occurrence: None)
  Receive Date: 20090923
  Receipt Date: 20070709
  Transmission Date: 20100115
  Serious: Yes (Other)
  Sender: FDA-Public Use
  Company Number: US-ASTRAZENECA-2006UW25433

PATIENT
  Age: 22658 Day
  Sex: Female
  Weight: 68 kg

DRUGS (5)
  1. SEROQUEL [Suspect]
     Indication: BIPOLAR DISORDER
     Dosage: 12.5-25 MG
     Route: 048
     Dates: start: 20041215
  2. SEROQUEL [Suspect]
     Indication: DEPRESSION
     Dosage: 12.5-25 MG
     Route: 048
     Dates: start: 20041215
  3. SEROQUEL [Suspect]
     Dosage: 25 MG
     Route: 048
     Dates: start: 20051001
  4. SEROQUEL [Suspect]
     Dosage: 25 MG
     Route: 048
     Dates: start: 20051001
  5. LEXAPRO [Concomitant]
     Dosage: 10-20 MG
     Dates: start: 20041215

REACTIONS (3)
  - BLOOD GLUCOSE ABNORMAL [None]
  - DIABETIC KETOACIDOSIS [None]
  - TYPE 2 DIABETES MELLITUS [None]
